FAERS Safety Report 8248838-7 (Version None)
Quarter: 2012Q2

REPORT INFORMATION
  Report Type: 
  Country: None (occurrence: None)
  Receive Date: 20120401
  Receipt Date: 20120326
  Transmission Date: 20120825
  Serious: Yes (Other)
  Sender: FDA-Public Use
  Company Number: PHFR2012GB001656

PATIENT
  Sex: Male

DRUGS (2)
  1. CLOZARIL [Suspect]
     Indication: SCHIZOPHRENIA
     Dosage: UNK UKN, UNK
     Route: 048
     Dates: start: 20120221
  2. FLUOXETINE [Concomitant]
     Dosage: UNK UKN, UNK

REACTIONS (7)
  - PALPITATIONS [None]
  - TACHYCARDIA [None]
  - CHEST PAIN [None]
  - DIFFERENTIAL WHITE BLOOD CELL COUNT ABNORMAL [None]
  - ELECTROCARDIOGRAM QT PROLONGED [None]
  - CARDIAC DISORDER [None]
  - ORTHOSTATIC HYPOTENSION [None]
